FAERS Safety Report 24703455 (Version 1)
Quarter: 2024Q4

REPORT INFORMATION
  Report Type: Spontaneous
  Country: US (occurrence: US)
  Receive Date: 20241205
  Receipt Date: 20241205
  Transmission Date: 20250115
  Serious: Yes (Other)
  Sender: ABBVIE
  Company Number: US-ABBVIE-6030825

PATIENT
  Age: 83 Year
  Sex: Female

DRUGS (2)
  1. ELAHERE [Suspect]
     Active Substance: MIRVETUXIMAB SORAVTANSINE-GYNX
     Indication: Ovarian cancer
     Dosage: FIRST DOSE      DISCONTINUED IN 2024
     Route: 042
     Dates: start: 20241010
  2. ELAHERE [Suspect]
     Active Substance: MIRVETUXIMAB SORAVTANSINE-GYNX
     Indication: Ovarian cancer
     Dosage: 2ND DOSE
     Route: 042
     Dates: start: 20241101

REACTIONS (9)
  - Eye swelling [Not Recovered/Not Resolved]
  - Dyspepsia [Recovered/Resolved]
  - Blood magnesium decreased [Recovered/Resolved]
  - Eye disorder [Recovering/Resolving]
  - Photophobia [Not Recovered/Not Resolved]
  - Vision blurred [Not Recovered/Not Resolved]
  - Visual impairment [Not Recovered/Not Resolved]
  - Dysphonia [Not Recovered/Not Resolved]
  - Gait disturbance [Not Recovered/Not Resolved]

NARRATIVE: CASE EVENT DATE: 20240101
